FAERS Safety Report 14707098 (Version 2)
Quarter: 2018Q2

REPORT INFORMATION
  Report Type: Report from Study
  Country: None (occurrence: ES)
  Receive Date: 20180403
  Receipt Date: 20180418
  Transmission Date: 20180711
  Serious: Yes (Hospitalization, Other)
  Sender: FDA-Public Use
  Company Number: ES-ABBVIE-18K-144-2308906-00

PATIENT
  Age: 75 Year
  Sex: Female
  Weight: 58 kg

DRUGS (1)
  1. DUODOPA [Suspect]
     Active Substance: CARBIDOPA\LEVODOPA
     Indication: PARKINSON^S DISEASE
     Route: 050
     Dates: start: 20171110

REACTIONS (4)
  - Femur fracture [Recovering/Resolving]
  - Fall [Recovered/Resolved]
  - Gait disturbance [Unknown]
  - Procedural pain [Unknown]

NARRATIVE: CASE EVENT DATE: 2018
